FAERS Safety Report 11915825 (Version 1)
Quarter: 2016Q1

REPORT INFORMATION
  Report Type: Report from Study
  Country: CN (occurrence: CN)
  Receive Date: 20160114
  Receipt Date: 20160114
  Transmission Date: 20160526
  Serious: Yes (Other)
  Sender: FDA-Public Use
  Company Number: CN-BRISTOL-MYERS SQUIBB COMPANY-BMS-2016-002238

PATIENT
  Age: 70 Year
  Sex: Male

DRUGS (6)
  1. XELODA [Suspect]
     Active Substance: CAPECITABINE
     Indication: COLON CANCER
     Dosage: UNK MG, UNK
     Route: 048
     Dates: start: 20151019
  2. CETUXIMAB [Suspect]
     Active Substance: CETUXIMAB
     Indication: COLON CANCER
     Dosage: 400 MG/M2, QWK
     Route: 042
     Dates: start: 20150909
  3. XELODA [Suspect]
     Active Substance: CAPECITABINE
     Dosage: 4000 MG, Q3WK
     Route: 048
     Dates: start: 20151112, end: 201512
  4. CETUXIMAB [Suspect]
     Active Substance: CETUXIMAB
     Dosage: 250 MG/M2, QWK
     Route: 065
     Dates: end: 201512
  5. XELODA [Suspect]
     Active Substance: CAPECITABINE
     Dosage: 3500 MG, UNK
     Route: 048
     Dates: start: 20151022
  6. CPT-11 [Concomitant]
     Active Substance: IRINOTECAN
     Indication: COLON CANCER
     Dosage: 150 MG, QWK
     Route: 042
     Dates: start: 20150909

REACTIONS (2)
  - Bone marrow failure [Unknown]
  - Asthenia [Unknown]

NARRATIVE: CASE EVENT DATE: 201512
